FAERS Safety Report 8266920-5 (Version None)
Quarter: 2012Q2

REPORT INFORMATION
  Report Type: 
  Country: None (occurrence: None)
  Receive Date: 20120404
  Receipt Date: 20120404
  Transmission Date: 20120825
  Serious: Yes (Hospitalization)
  Sender: FDA-Public Use
  Company Number: None

PATIENT
  Age: 31 Year
  Sex: Male
  Weight: 74.5 kg

DRUGS (1)
  1. TRAMADOL HCL [Suspect]
     Indication: PAIN
     Dosage: 100 MG OTHER PO
     Route: 048
     Dates: start: 20111124, end: 20111125

REACTIONS (6)
  - PHARYNGEAL OEDEMA [None]
  - ANGIOEDEMA [None]
  - BACK PAIN [None]
  - PRURITUS [None]
  - URTICARIA [None]
  - RASH [None]
